FAERS Safety Report 16915723 (Version 1)
Quarter: 2019Q4

REPORT INFORMATION
  Report Type: Spontaneous
  Country: US (occurrence: US)
  Receive Date: 20191013
  Receipt Date: 20191013
  Transmission Date: 20200122
  Serious: No
  Sender: FDA-Public Use
  Company Number: None

PATIENT
  Age: 27 Year
  Sex: Female
  Weight: 101.25 kg

DRUGS (8)
  1. IBUPROFEN. [Concomitant]
     Active Substance: IBUPROFEN
  2. VIIBRYD [Suspect]
     Active Substance: VILAZODONE HYDROCHLORIDE
     Indication: DEPRESSION
     Dosage: ?          QUANTITY:1 TABLET(S);?
     Route: 048
     Dates: start: 20190430
  3. LARISSIA [Concomitant]
     Active Substance: ETHINYL ESTRADIOL\LEVONORGESTREL
  4. PROTONIX [Concomitant]
     Active Substance: PANTOPRAZOLE SODIUM
  5. TYLENOL [Concomitant]
     Active Substance: ACETAMINOPHEN
  6. VIIBRYD [Suspect]
     Active Substance: VILAZODONE HYDROCHLORIDE
     Indication: ANXIETY
     Dosage: ?          QUANTITY:1 TABLET(S);?
     Route: 048
     Dates: start: 20190430
  7. VIIBRYD [Concomitant]
     Active Substance: VILAZODONE HYDROCHLORIDE
  8. VISTARIL [Concomitant]
     Active Substance: HYDROXYZINE PAMOATE

REACTIONS (3)
  - Weight increased [None]
  - Female sexual dysfunction [None]
  - Glossodynia [None]

NARRATIVE: CASE EVENT DATE: 20190430
